FAERS Safety Report 5811145-3 (Version None)
Quarter: 2008Q3

REPORT INFORMATION
  Report Type: 
  Country: None (occurrence: None)
  Receive Date: 20080710
  Receipt Date: 20080626
  Transmission Date: 20090109
  Serious: Yes (Hospitalization)
  Sender: FDA-Public Use
  Company Number: S08-FRA-00578-01

PATIENT
  Age: 80 Year
  Sex: Female

DRUGS (1)
  1. EBIXA (MEMANTINE HYDROCHLORIDE) [Suspect]
     Indication: DEMENTIA ALZHEIMER'S TYPE
     Dosage: 20 MG OD PO
     Route: 048
     Dates: start: 20070101, end: 20080101

REACTIONS (3)
  - DIZZINESS [None]
  - HYPOTENSION [None]
  - MALAISE [None]
